FAERS Safety Report 9163228 (Version 2)
Quarter: 2013Q1

REPORT INFORMATION
  Report Type: Report from Study
  Country: GB (occurrence: GB)
  Receive Date: 20130314
  Receipt Date: 20130320
  Transmission Date: 20140127
  Serious: Yes (Hospitalization)
  Sender: FDA-Public Use
  Company Number: GB-ROCHE-1201812

PATIENT
  Age: 79 Year
  Sex: Male

DRUGS (10)
  1. RANIBIZUMAB [Suspect]
     Indication: DIABETIC RETINAL OEDEMA
     Route: 050
     Dates: start: 20130206
  2. RANIBIZUMAB [Suspect]
     Route: 050
     Dates: start: 20130306
  3. DILTIAZEM HYDROCHLORIDE [Concomitant]
     Indication: HYPERTENSION
  4. DIGOXIN [Concomitant]
     Indication: ATRIAL FIBRILLATION
  5. PIOGLITAZONE [Concomitant]
  6. WARFARIN [Concomitant]
     Indication: ATRIAL FIBRILLATION
  7. GLICLAZIDE [Concomitant]
     Indication: TYPE 2 DIABETES MELLITUS
  8. TADALAFIL [Concomitant]
     Indication: ERECTILE DYSFUNCTION
  9. LISINOPRIL [Concomitant]
  10. SIMVASTATIN [Concomitant]
     Indication: BLOOD CHOLESTEROL INCREASED

REACTIONS (2)
  - Diarrhoea [Not Recovered/Not Resolved]
  - Dehydration [Not Recovered/Not Resolved]
